FAERS Safety Report 5122595-5 (Version None)
Quarter: 2006Q4

REPORT INFORMATION
  Report Type: 
  Country: None (occurrence: None)
  Receive Date: 20061005
  Receipt Date: 20061005
  Transmission Date: 20070319
  Serious: Yes (Life-Threatening, Disabling)
  Sender: FDA-Public Use
  Company Number: None

PATIENT
  Age: 64 Year
  Sex: Female
  Weight: 78.9259 kg

DRUGS (1)
  1. ALACER EMERGEN-C VITAMIN PACKET 1000MG VITAMIN 1000MG MSM  ALACKER COR [Suspect]
     Indication: VITAMIN C
     Dosage: SEE IMAGE
     Route: 002
     Dates: start: 20060812, end: 20060812

REACTIONS (6)
  - ASTHMA [None]
  - CONDITION AGGRAVATED [None]
  - DYSPHONIA [None]
  - PHARMACEUTICAL PRODUCT COMPLAINT [None]
  - PRURITUS [None]
  - PULMONARY CONGESTION [None]
